FAERS Safety Report 6418604-3 (Version None)
Quarter: 2009Q4

REPORT INFORMATION
  Report Type: 
  Country: None (occurrence: None)
  Receive Date: 20091028
  Receipt Date: 20091021
  Transmission Date: 20100525
  Serious: Yes (Other)
  Sender: FDA-Public Use
  Company Number: PHHY2009JP45847

PATIENT
  Age: 15 Year
  Sex: Male

DRUGS (4)
  1. NEORAL [Suspect]
     Indication: NEPHROTIC SYNDROME
     Dosage: 200 MG
     Route: 048
  2. PREDNISOLONE [Suspect]
     Route: 048
  3. ALDACTONE [Concomitant]
  4. LASIX [Concomitant]

REACTIONS (3)
  - DEEP VEIN THROMBOSIS [None]
  - HAEMOPTYSIS [None]
  - PURPURA [None]
